FAERS Safety Report 8391007-0 (Version None)
Quarter: 2012Q2

REPORT INFORMATION
  Report Type: 
  Country: None (occurrence: None)
  Receive Date: 20120529
  Receipt Date: 20120518
  Transmission Date: 20120825
  Serious: Yes (Other)
  Sender: FDA-Public Use
  Company Number: ES-CELGENEUS-144-50794-12052406

PATIENT
  Age: 81 Year
  Sex: Male

DRUGS (9)
  1. VIDAZA [Suspect]
     Indication: ACUTE MYELOID LEUKAEMIA
     Route: 050
  2. RED BLOOD CELLS [Concomitant]
     Route: 065
  3. TEBETANE [Concomitant]
     Route: 065
  4. ANTIHISTAMINES [Concomitant]
     Indication: SKIN LESION
     Route: 065
  5. IRBESARTAN [Concomitant]
     Route: 065
  6. CORTICOSTEROIDS [Concomitant]
     Indication: SKIN LESION
     Route: 061
  7. DEFERASIROX [Concomitant]
     Indication: IRON OVERLOAD
     Route: 065
  8. VIDAZA [Suspect]
     Indication: SKIN LESION
  9. TAMSULOSIN HYDROCHLORIDE [Concomitant]
     Route: 065

REACTIONS (1)
  - URINARY RETENTION [None]
